FAERS Safety Report 5501615-X (Version None)
Quarter: 2007Q4

REPORT INFORMATION
  Report Type: 
  Country: None (occurrence: None)
  Receive Date: 20071030
  Receipt Date: 20071017
  Transmission Date: 20080405
  Serious: Yes (Hospitalization, Other)
  Sender: FDA-Public Use
  Company Number: US-ELI_LILLY_AND_COMPANY-US200710004244

PATIENT
  Sex: Male

DRUGS (3)
  1. FORTEO [Suspect]
  2. BETA BLOCKING AGENTS [Concomitant]
  3. GLUCOTROL [Concomitant]
     Indication: DIABETES MELLITUS

REACTIONS (4)
  - FALL [None]
  - HIP FRACTURE [None]
  - HIP SURGERY [None]
  - REMOVAL OF INTERNAL FIXATION [None]
